FAERS Safety Report 18777239 (Version 3)
Quarter: 2021Q4

REPORT INFORMATION
  Report Type: Report from Study
  Country: US (occurrence: US)
  Receive Date: 20210123
  Receipt Date: 20211216
  Transmission Date: 20220303
  Serious: Yes (Hospitalization, Other)
  Sender: FDA-Public Use
  Company Number: US-TAKEDA-2021TUS004268

PATIENT
  Age: 60 Year
  Sex: Female

DRUGS (11)
  1. PARATHYROID HORMONE [Suspect]
     Active Substance: PARATHYROID HORMONE
     Indication: Hypocalcaemia
     Dosage: 50 MICROGRAM, QD
     Route: 058
     Dates: start: 20210108, end: 20210110
  2. PARATHYROID HORMONE [Suspect]
     Active Substance: PARATHYROID HORMONE
     Indication: Hypocalcaemia
     Dosage: 50 MICROGRAM, QD
     Route: 058
     Dates: start: 20210108, end: 20210110
  3. PARATHYROID HORMONE [Suspect]
     Active Substance: PARATHYROID HORMONE
     Indication: Hypocalcaemia
     Dosage: 50 MICROGRAM, QD
     Route: 058
     Dates: start: 20210108, end: 20210110
  4. PARATHYROID HORMONE [Suspect]
     Active Substance: PARATHYROID HORMONE
     Indication: Mineral supplementation
     Dosage: 50 MICROGRAM, QD
     Route: 058
     Dates: start: 201803
  5. PARATHYROID HORMONE [Suspect]
     Active Substance: PARATHYROID HORMONE
     Indication: Mineral supplementation
     Dosage: 50 MICROGRAM, QD
     Route: 058
     Dates: start: 201803
  6. PARATHYROID HORMONE [Suspect]
     Active Substance: PARATHYROID HORMONE
     Indication: Mineral supplementation
     Dosage: 50 MICROGRAM, QD
     Route: 058
     Dates: start: 201803
  7. PARATHYROID HORMONE [Suspect]
     Active Substance: PARATHYROID HORMONE
     Indication: Vitamin supplementation
  8. PARATHYROID HORMONE [Suspect]
     Active Substance: PARATHYROID HORMONE
     Indication: Vitamin supplementation
  9. PARATHYROID HORMONE [Suspect]
     Active Substance: PARATHYROID HORMONE
     Indication: Vitamin supplementation
  10. DIPHENHYDRAMINE [Concomitant]
     Active Substance: DIPHENHYDRAMINE
     Route: 065
  11. FAMOTIDINE [Concomitant]
     Active Substance: FAMOTIDINE
     Route: 065

REACTIONS (4)
  - COVID-19 pneumonia [Recovering/Resolving]
  - Condition aggravated [Not Recovered/Not Resolved]
  - Hospitalisation [Unknown]
  - Hypersensitivity [Not Recovered/Not Resolved]

NARRATIVE: CASE EVENT DATE: 20210108
